FAERS Safety Report 22079848 (Version 1)
Quarter: 2023Q1

REPORT INFORMATION
  Report Type: Report from Study
  Country: US (occurrence: US)
  Receive Date: 20230309
  Receipt Date: 20230309
  Transmission Date: 20230417
  Serious: Yes (Hospitalization, Other)
  Sender: FDA-Public Use
  Company Number: US-ABBVIE-4333334

PATIENT
  Age: 59 Year
  Sex: Female

DRUGS (1)
  1. RINVOQ [Suspect]
     Active Substance: UPADACITINIB
     Indication: Product used for unknown indication
     Route: 048
     Dates: start: 20220419

REACTIONS (5)
  - Knee operation [Unknown]
  - Urinary tract infection [Unknown]
  - COVID-19 [Unknown]
  - Diarrhoea [Unknown]
  - Sepsis [Unknown]

NARRATIVE: CASE EVENT DATE: 20221201
